FAERS Safety Report 15486020 (Version 2)
Quarter: 2018Q4

REPORT INFORMATION
  Report Type: Spontaneous
  Country: FR (occurrence: FR)
  Receive Date: 20181011
  Receipt Date: 20181029
  Transmission Date: 20190205
  Serious: Yes (Hospitalization)
  Sender: FDA-Public Use
  Company Number: PHHY2018FR119860

PATIENT
  Age: 71 Year
  Sex: Male
  Weight: 85 kg

DRUGS (6)
  1. ZOPHREN [Suspect]
     Active Substance: ONDANSETRON
     Indication: COLORECTAL CANCER METASTATIC
     Dosage: 8 MG, ONCE/SINGLE
     Route: 048
     Dates: start: 20180828, end: 20180828
  2. SOLU-MEDROL [Suspect]
     Active Substance: METHYLPREDNISOLONE SODIUM SUCCINATE
     Indication: COLORECTAL CANCER METASTATIC
     Dosage: 80 MG, QD
     Route: 042
     Dates: start: 20180828, end: 20180828
  3. CALCIUM [Suspect]
     Active Substance: CALCIUM
     Indication: COLORECTAL CANCER METASTATIC
     Dosage: 400 MG, ONCE/SINGLE
     Route: 042
     Dates: start: 20180828, end: 20180828
  4. POLARAMINE [Suspect]
     Active Substance: DEXCHLORPHENIRAMINE MALEATE
     Indication: COLORECTAL CANCER METASTATIC
     Dosage: 5 MG, ONCE/SINGLE
     Route: 042
     Dates: start: 20180828, end: 20180828
  5. OXALIPLATINE [Suspect]
     Active Substance: OXALIPLATIN
     Indication: COLORECTAL CANCER METASTATIC
     Dosage: 140 MG, ONCE/SINGLE
     Route: 042
     Dates: start: 20180828, end: 20180828
  6. POLARAMINE [Suspect]
     Active Substance: DEXCHLORPHENIRAMINE MALEATE
     Indication: COLORECTAL CANCER METASTATIC

REACTIONS (3)
  - Pruritus [Recovered/Resolved]
  - Hypersensitivity [Recovered/Resolved]
  - Erythema [Recovered/Resolved]

NARRATIVE: CASE EVENT DATE: 20180828
